FAERS Safety Report 11858839 (Version 1)
Quarter: 2015Q4

REPORT INFORMATION
  Report Type: Spontaneous
  Country: US (occurrence: US)
  Receive Date: 20151222
  Receipt Date: 20151222
  Transmission Date: 20160305
  Serious: No
  Sender: FDA-Public Use
  Company Number: US-DRREDDYS-USA/USA/15/0050206

PATIENT
  Age: 85 Year
  Sex: Female
  Weight: 55.79 kg

DRUGS (2)
  1. HYDROCHLOROTHIAZIDE AND LISINOPRIL [Concomitant]
     Active Substance: HYDROCHLOROTHIAZIDE\LISINOPRIL
     Indication: HYPERTENSION
     Route: 065
  2. HABITROL [Suspect]
     Active Substance: NICOTINE
     Indication: SMOKING CESSATION THERAPY
     Route: 062
     Dates: end: 20150818

REACTIONS (3)
  - Rash [Unknown]
  - Application site erythema [Unknown]
  - Application site pruritus [Unknown]

NARRATIVE: CASE EVENT DATE: 20150812
